FAERS Safety Report 12220077 (Version 1)
Quarter: 2016Q1

REPORT INFORMATION
  Report Type: Report from Study
  Country: JP (occurrence: JP)
  Receive Date: 20160330
  Receipt Date: 20160330
  Transmission Date: 20160526
  Serious: Yes (Hospitalization, Other)
  Sender: FDA-Public Use
  Company Number: JP-SHIRE-JP201603682

PATIENT
  Age: 70 Year
  Sex: Male

DRUGS (19)
  1. REGPARA [Concomitant]
     Active Substance: CINACALCET HYDROCHLORIDE
     Indication: HYPERPARATHYROIDISM SECONDARY
     Dosage: 25 MG, UNKNOWN
     Route: 048
     Dates: end: 20090816
  2. ONEALFA [Concomitant]
     Active Substance: ALFACALCIDOL
     Dosage: 0.5 ?G, UNKNOWN
     Route: 048
     Dates: start: 20120131, end: 20130304
  3. 405 (LANTHANUM CARBONATE) [Suspect]
     Active Substance: LANTHANUM CARBONATE
     Dosage: 1500 MG, OTHER (/DAY)
     Route: 048
     Dates: start: 20100305, end: 20101114
  4. DASEN [Concomitant]
     Indication: PRODUCT USED FOR UNKNOWN INDICATION
     Dosage: 30 MG, UNKNOWN
     Route: 048
  5. 405 (LANTHANUM CARBONATE) [Suspect]
     Active Substance: LANTHANUM CARBONATE
     Indication: HYPERPHOSPHATAEMIA
     Dosage: 1000 MG, OTHER (/DAY)
     Route: 048
     Dates: start: 20110207, end: 20150114
  6. REGPARA [Concomitant]
     Active Substance: CINACALCET HYDROCHLORIDE
     Dosage: 50 MG, UNKNOWN
     Route: 048
     Dates: start: 20090817, end: 20091215
  7. REGPARA [Concomitant]
     Active Substance: CINACALCET HYDROCHLORIDE
     Dosage: 50 MG, UNKNOWN
     Route: 048
     Dates: start: 20100305
  8. AMLODIPINE [Concomitant]
     Active Substance: AMLODIPINE BESYLATE
     Indication: PRODUCT USED FOR UNKNOWN INDICATION
     Dosage: 10 MG, UNKNOWN
     Route: 048
  9. NESP [Concomitant]
     Active Substance: DARBEPOETIN ALFA
     Indication: PRODUCT USED FOR UNKNOWN INDICATION
     Dosage: 40 ?G, UNKNOWN
     Route: 042
  10. REGPARA [Concomitant]
     Active Substance: CINACALCET HYDROCHLORIDE
     Dosage: 25 MG, UNKNOWN
     Route: 048
     Dates: start: 20100208, end: 20100304
  11. ACECOL                             /01277402/ [Concomitant]
     Indication: PRODUCT USED FOR UNKNOWN INDICATION
     Dosage: 2 MG, UNKNOWN
     Route: 048
  12. FESIN                              /00023550/ [Concomitant]
     Active Substance: IRON SUCROSE
     Indication: HYPERPHOSPHATAEMIA
     Dosage: UNK UNK, UNKNOWN
     Route: 065
  13. ONEALFA [Concomitant]
     Active Substance: ALFACALCIDOL
     Indication: PRODUCT USED FOR UNKNOWN INDICATION
     Dosage: 0.5 ?G, UNKNOWN
     Route: 048
     Dates: start: 20090804, end: 20090831
  14. KALIMATE [Concomitant]
     Active Substance: CALCIUM POLYSTYRENE SULFONATE
     Indication: PRODUCT USED FOR UNKNOWN INDICATION
     Dosage: 15 G, UNKNOWN
     Route: 048
  15. 405 (LANTHANUM CARBONATE) [Suspect]
     Active Substance: LANTHANUM CARBONATE
     Dosage: 750 MG, OTHER (/DAY)
     Route: 048
     Dates: start: 20090420, end: 20100305
  16. 405 (LANTHANUM CARBONATE) [Suspect]
     Active Substance: LANTHANUM CARBONATE
     Dosage: 1250 MG, OTHER (/DAY)
     Route: 048
     Dates: start: 20150115
  17. ONEALFA [Concomitant]
     Active Substance: ALFACALCIDOL
     Dosage: 0.25 ?G, UNKNOWN
     Route: 048
     Dates: start: 20130305
  18. 405 (LANTHANUM CARBONATE) [Suspect]
     Active Substance: LANTHANUM CARBONATE
     Dosage: 750 MG, OTHER (/DAY)
     Route: 048
     Dates: start: 20101115, end: 20110206
  19. MICARDIS [Concomitant]
     Active Substance: TELMISARTAN
     Indication: PRODUCT USED FOR UNKNOWN INDICATION
     Dosage: 80 MG, UNKNOWN
     Route: 048

REACTIONS (2)
  - Gastritis [Recovering/Resolving]
  - Crush injury [Recovering/Resolving]

NARRATIVE: CASE EVENT DATE: 20140922
